FAERS Safety Report 5161161-2 (Version None)
Quarter: 2006Q4

REPORT INFORMATION
  Report Type: 
  Country: None (occurrence: None)
  Receive Date: 20061130
  Receipt Date: 20061010
  Transmission Date: 20070319
  Serious: Yes (Other)
  Sender: FDA-Public Use
  Company Number: PHBS2006KR15890

PATIENT
  Age: 75 Year
  Sex: Female

DRUGS (1)
  1. ZOMETA [Suspect]
     Indication: METASTASES TO BONE
     Dosage: 4 MG, EVERY 3 WEEKS
     Route: 042
     Dates: start: 20040914, end: 20060912

REACTIONS (4)
  - INFLAMMATION [None]
  - OSTEONECROSIS [None]
  - PAIN IN JAW [None]
  - SURGERY [None]
